FAERS Safety Report 5969526-3 (Version None)
Quarter: 2008Q4

REPORT INFORMATION
  Report Type: 
  Country: None (occurrence: None)
  Receive Date: 20081126
  Receipt Date: 20081119
  Transmission Date: 20090506
  Serious: Yes (Hospitalization)
  Sender: FDA-Public Use
  Company Number: IL-ABBOTT-08P-082-0488850-00

PATIENT
  Age: 59 Year
  Sex: Male
  Weight: 75 kg

DRUGS (2)
  1. HUMIRA [Suspect]
     Indication: CROHN'S DISEASE
     Route: 058
     Dates: start: 20080801, end: 20081001
  2. HUMIRA [Suspect]
     Indication: ANKYLOSING SPONDYLITIS

REACTIONS (2)
  - PSORIASIS [None]
  - SKIN LESION [None]
